FAERS Safety Report 6877336-8 (Version None)
Quarter: 2010Q3

REPORT INFORMATION
  Report Type: 
  Country: None (occurrence: None)
  Receive Date: 20100727
  Receipt Date: 20090908
  Transmission Date: 20110219
  Serious: No
  Sender: FDA-Public Use
  Company Number: US-ABBOTT-09P-163-0596867-00

PATIENT
  Sex: Female
  Weight: 91.254 kg

DRUGS (2)
  1. SYNTHROID [Suspect]
     Indication: HYPOTHYROIDISM
     Route: 048
     Dates: start: 20080901, end: 20090901
  2. SYNTHROID [Suspect]
     Route: 048
     Dates: start: 20090908, end: 20090908

REACTIONS (3)
  - HEADACHE [None]
  - MUSCLE SPASMS [None]
  - PALPITATIONS [None]
